FAERS Safety Report 6279625-7 (Version None)
Quarter: 2009Q3

REPORT INFORMATION
  Report Type: 
  Country: None (occurrence: None)
  Receive Date: 20090723
  Receipt Date: 20090713
  Transmission Date: 20100115
  Serious: Yes (Other)
  Sender: FDA-Public Use
  Company Number: B0584179A

PATIENT
  Age: 11 Year
  Sex: Male

DRUGS (8)
  1. ALKERAN [Suspect]
     Indication: MEDULLOBLASTOMA
     Route: 042
  2. VINCRISTINE SULFATE [Suspect]
     Route: 065
  3. CAPREOMYCIN SULFATE [Suspect]
     Route: 065
  4. CISPLATIN [Suspect]
     Route: 065
  5. ETOPOSIDE [Suspect]
     Route: 065
  6. THIOTEPA [Suspect]
     Route: 065
  7. METHOTREXATE [Suspect]
     Route: 065
  8. CEFPIRAMIDE [Suspect]
     Route: 065

REACTIONS (2)
  - BONE SARCOMA [None]
  - PAIN IN EXTREMITY [None]
